APPROVED DRUG PRODUCT: RANOLAZINE
Active Ingredient: RANOLAZINE
Strength: 500MG
Dosage Form/Route: TABLET, EXTENDED RELEASE;ORAL
Application: A214035 | Product #001 | TE Code: AB
Applicant: VKT PHARMA PRIVATE LTD
Approved: Jan 19, 2022 | RLD: No | RS: No | Type: RX